FAERS Safety Report 8560000-7 (Version None)
Quarter: 2012Q3

REPORT INFORMATION
  Report Type: 
  Country: None (occurrence: None)
  Receive Date: 20120802
  Receipt Date: 20120720
  Transmission Date: 20120928
  Serious: Yes (Hospitalization, Other)
  Sender: FDA-Public Use
  Company Number: FR-PFIZER INC-2012175579

PATIENT
  Age: 83 Year
  Sex: Female

DRUGS (7)
  1. ALPRAZOLAM [Suspect]
     Indication: DEPRESSION
     Dosage: UNK
     Route: 048
  2. ATORVASTATIN [Suspect]
     Indication: HYPERCHOLESTEROLAEMIA
     Dosage: UNK
     Route: 048
  3. ZOLPIDEM [Suspect]
     Indication: DEPRESSION
     Dosage: UNK
     Route: 048
  4. ARICEPT [Suspect]
     Indication: DEMENTIA ALZHEIMER'S TYPE
     Dosage: UNK
     Route: 048
     Dates: start: 20100201
  5. PERINDOPRIL ERBUMINE [Suspect]
     Indication: HYPERTENSION
     Dosage: UNK
     Route: 048
  6. ATHYMIL [Suspect]
     Indication: DEPRESSION
     Dosage: UNK
     Route: 048
  7. PULMICORT [Suspect]
     Indication: ASTHMA
     Dosage: UNK
     Route: 048
     Dates: start: 20120401

REACTIONS (5)
  - ELECTROCARDIOGRAM QT PROLONGED [None]
  - MALAISE [None]
  - FALL [None]
  - BRADYCARDIA [None]
  - ASTHMA [None]
